FAERS Safety Report 10254248 (Version 3)
Quarter: 2015Q2

REPORT INFORMATION
  Report Type: Report from Study
  Country: JP (occurrence: JP)
  Receive Date: 20140624
  Receipt Date: 20150608
  Transmission Date: 20150821
  Serious: Yes (Other)
  Sender: FDA-Public Use
  Company Number: JP-009507513-1406JPN009248

PATIENT
  Age: 58 Year
  Sex: Female
  Weight: 52 kg

DRUGS (8)
  1. REBETOL [Suspect]
     Active Substance: RIBAVIRIN
     Indication: HEPATIC CIRRHOSIS
     Dosage: 400 MG, QD
     Route: 048
     Dates: start: 20120515, end: 20121107
  2. LOXONIN [Concomitant]
     Active Substance: LOXOPROFEN SODIUM
     Indication: PYREXIA
     Dosage: 60 MG, PRN; FORMULATION: POR
     Route: 048
     Dates: start: 20120515, end: 20121107
  3. PEGINTRON [Suspect]
     Active Substance: PEGINTERFERON ALFA-2B
     Dosage: 50 MICROGRAM, QW
     Route: 058
     Dates: start: 20120717, end: 20121107
  4. PURSENNID (SENNOSIDES) [Concomitant]
     Indication: CONSTIPATION
     Dosage: 24 MG, PRN; FORMULATION: POR
     Route: 048
     Dates: start: 20120515
  5. MUCOSTA [Concomitant]
     Active Substance: REBAMIPIDE
     Indication: PYREXIA
     Dosage: 100 MG, PRN; FORMULATION: POR
     Route: 048
     Dates: start: 20120515, end: 20121107
  6. GLYCYRON [Concomitant]
     Active Substance: AMMONIUM GLYCYRRHIZATE\GLYCINE\METHIONINE
     Indication: HEPATITIS C
     Dosage: 2 DF, TID
     Route: 048
     Dates: start: 20120515
  7. URSO [Concomitant]
     Active Substance: URSODIOL
     Indication: HEPATITIS C
     Dosage: 200 MG, TID; FORMULATION: POR
     Route: 048
     Dates: start: 20120515
  8. PEGINTRON [Suspect]
     Active Substance: PEGINTERFERON ALFA-2B
     Indication: HEPATIC CIRRHOSIS
     Dosage: 40 MICROGRAM, QW
     Route: 058
     Dates: start: 20120515, end: 20120711

REACTIONS (5)
  - Alanine aminotransferase increased [Recovered/Resolved]
  - Anaemia [Recovering/Resolving]
  - Loss of consciousness [Recovered/Resolved]
  - Aspartate aminotransferase increased [Recovered/Resolved]
  - Blood thyroid stimulating hormone increased [Not Recovered/Not Resolved]

NARRATIVE: CASE EVENT DATE: 20120523
